FAERS Safety Report 20834039 (Version 1)
Quarter: 2022Q2

REPORT INFORMATION
  Report Type: Report from Study
  Country: US (occurrence: US)
  Receive Date: 20220516
  Receipt Date: 20220516
  Transmission Date: 20220721
  Serious: Yes (Other)
  Sender: FDA-Public Use
  Company Number: US-ABBVIE-22K-163-4391986-00

PATIENT
  Sex: Male

DRUGS (2)
  1. RINVOQ [Suspect]
     Active Substance: UPADACITINIB
     Indication: Rheumatoid arthritis
     Route: 048
     Dates: start: 20211128, end: 202202
  2. RINVOQ [Suspect]
     Active Substance: UPADACITINIB
     Route: 048
     Dates: start: 202205

REACTIONS (2)
  - Spinal operation [Recovering/Resolving]
  - Arthralgia [Recovering/Resolving]

NARRATIVE: CASE EVENT DATE: 20220101
